FAERS Safety Report 4644424-6 (Version None)
Quarter: 2005Q2

REPORT INFORMATION
  Report Type: 
  Country: None (occurrence: None)
  Receive Date: 20050331
  Receipt Date: 20041206
  Transmission Date: 20051028
  Serious: No
  Sender: FDA-Public Use
  Company Number: 04P-163-0282528-00

PATIENT
  Age: 6 Year
  Sex: Female
  Weight: 23.587 kg

DRUGS (2)
  1. HUMIRA [Suspect]
     Indication: JUVENILE ARTHRITIS
     Dosage: 20 MG, 1 IN 2 WK, SUBCUTANEOUS
     Route: 058
     Dates: start: 20041118
  2. CITALOPRAM HYDROBROMIDE [Concomitant]

REACTIONS (5)
  - ABNORMAL BEHAVIOUR [None]
  - CONDITION AGGRAVATED [None]
  - DECREASED APPETITE [None]
  - PALLOR [None]
  - RASH [None]
